FAERS Safety Report 4545973-1 (Version None)
Quarter: 2005Q1

REPORT INFORMATION
  Report Type: 
  Country: None (occurrence: None)
  Receive Date: 20050103
  Receipt Date: 20041220
  Transmission Date: 20050727
  Serious: Yes (Hospitalization)
  Sender: FDA-Public Use
  Company Number: 2004118061

PATIENT
  Age: 85 Year
  Sex: Female
  Weight: 66.6788 kg

DRUGS (2)
  1. IRINOTECAN HCL [Suspect]
     Indication: RECTAL CANCER
     Dosage: 30 MG/M*2 (WEEKLY X 6 WEEKS), INTRAVENOUS
     Route: 042
     Dates: start: 20041122, end: 20041213
  2. CAPECITABINE (CAPECITABINE) [Suspect]
     Indication: RECTAL CANCER
     Dosage: 1150 MG/M*2 (QD X 6 WEEKS), ORAL
     Route: 048
     Dates: start: 20041122, end: 20041220

REACTIONS (5)
  - ASTHENIA [None]
  - FATIGUE [None]
  - ORAL INTAKE REDUCED [None]
  - POST PROCEDURAL PAIN [None]
  - PROCTALGIA [None]
